FAERS Safety Report 23183804 (Version 1)
Quarter: 2023Q4

REPORT INFORMATION
  Report Type: Report from Study
  Country: US (occurrence: US)
  Receive Date: 20231114
  Receipt Date: 20231114
  Transmission Date: 20240110
  Serious: Yes (Other)
  Sender: FDA-Public Use
  Company Number: US-ABBVIE-5490305

PATIENT
  Age: 33 Year
  Sex: Male

DRUGS (3)
  1. SKYRIZI [Suspect]
     Active Substance: RISANKIZUMAB-RZAA
     Indication: Product used for unknown indication
     Dosage: LAST ADMIN DATE : 2023?FIRST DOSE
     Route: 058
     Dates: start: 20230316
  2. SKYRIZI [Suspect]
     Active Substance: RISANKIZUMAB-RZAA
     Dosage: LAST ADMIN DATE : 2023?SECOND DOSE
     Route: 058
     Dates: start: 20230413
  3. SKYRIZI [Suspect]
     Active Substance: RISANKIZUMAB-RZAA
     Dosage: THIRD DOSE?LAST ADMIN DATE : 2023
     Route: 058
     Dates: start: 20230712

REACTIONS (2)
  - Malignant melanoma [Recovered/Resolved with Sequelae]
  - Psoriasis [Unknown]

NARRATIVE: CASE EVENT DATE: 20230801
